FAERS Safety Report 15133995 (Version 3)
Quarter: 2018Q4

REPORT INFORMATION
  Report Type: Spontaneous
  Country: GB (occurrence: GB)
  Receive Date: 20180712
  Receipt Date: 20181022
  Transmission Date: 20190204
  Serious: Yes (Life-Threatening, Hospitalization)
  Sender: FDA-Public Use
  Company Number: PHHY2018GB040536

PATIENT
  Sex: Female

DRUGS (3)
  1. EXELON [Suspect]
     Active Substance: RIVASTIGMINE TARTRATE
     Indication: MIXED DEMENTIA
     Dosage: 13.3 MG, QD PATCH 15 (CM2)
     Route: 062
     Dates: start: 201609
  2. MEMANTINE. [Concomitant]
     Active Substance: MEMANTINE
     Indication: PRODUCT USED FOR UNKNOWN INDICATION
     Route: 065
  3. EXELON [Suspect]
     Active Substance: RIVASTIGMINE TARTRATE
     Indication: DEMENTIA ALZHEIMER^S TYPE
     Dosage: 1.9 MG, QD PATCH 2.5 (CM2)
     Route: 062

REACTIONS (13)
  - Memory impairment [Unknown]
  - Skin irritation [Unknown]
  - Erythema [Unknown]
  - Irritability [Unknown]
  - Chronic kidney disease [Unknown]
  - Wrong technique in product usage process [Unknown]
  - Overdose [Unknown]
  - Apparent death [Unknown]
  - Dementia [Unknown]
  - Scratch [Unknown]
  - Product colour issue [Unknown]
  - Renal disorder [Unknown]
  - Drooling [Unknown]
